FAERS Safety Report 5811644-4 (Version None)
Quarter: 2008Q3

REPORT INFORMATION
  Report Type: 
  Country: None (occurrence: None)
  Receive Date: 20080711
  Receipt Date: 20080711
  Transmission Date: 20090109
  Serious: No
  Sender: FDA-Public Use
  Company Number: None

PATIENT
  Sex: Male
  Weight: 95.2554 kg

DRUGS (1)
  1. DOXYCYLINE HYCLATE [Suspect]
     Indication: ARTHROPOD BITE
     Dosage: 100 MG CAP 2 X DAILY ORAL
     Route: 048
     Dates: start: 20080601, end: 20080615

REACTIONS (4)
  - PHOTOSENSITIVITY REACTION [None]
  - RASH ERYTHEMATOUS [None]
  - SKIN DISCOLOURATION [None]
  - TEMPERATURE INTOLERANCE [None]
